FAERS Safety Report 7213118-5 (Version None)
Quarter: 2010Q4

REPORT INFORMATION
  Report Type: 
  Country: None (occurrence: None)
  Receive Date: 20101229
  Receipt Date: 20101220
  Transmission Date: 20110411
  Serious: Yes (Hospitalization)
  Sender: FDA-Public Use
  Company Number: OSCN-NO-1011S-0284

PATIENT
  Age: 45 Year
  Sex: Female

DRUGS (1)
  1. OMNISCAN [Suspect]
     Indication: PRODUCT USED FOR UNKNOWN INDICATION
     Dosage: 10 ML, SINGLE DOSE, I.V.
     Route: 042
     Dates: start: 20101124, end: 20101124

REACTIONS (7)
  - ABDOMINAL PAIN UPPER [None]
  - ANAPHYLACTOID SHOCK [None]
  - MUSCLE SPASMS [None]
  - NAUSEA [None]
  - NEUROGENIC SHOCK [None]
  - TACHYCARDIA [None]
  - VOMITING [None]
